FAERS Safety Report 5409464-8 (Version None)
Quarter: 2007Q3

REPORT INFORMATION
  Report Type: 
  Country: None (occurrence: None)
  Receive Date: 20070807
  Receipt Date: 20070807
  Transmission Date: 20080115
  Serious: Yes (Other)
  Sender: FDA-Public Use
  Company Number: None

PATIENT
  Age: 26 Year
  Sex: Female
  Weight: 52.1637 kg

DRUGS (1)
  1. COLGATE TOTAL [Suspect]
     Indication: DENTAL DISORDER PROPHYLAXIS
     Dosage: 2 DENTAL
     Route: 004
     Dates: start: 20070729, end: 20070730

REACTIONS (6)
  - GINGIVAL BLISTER [None]
  - LIP BLISTER [None]
  - ORAL INTAKE REDUCED [None]
  - ORAL MUCOSAL BLISTERING [None]
  - STOMATITIS [None]
  - TONGUE BLISTERING [None]
